FAERS Safety Report 8261981-1 (Version None)
Quarter: 2012Q2

REPORT INFORMATION
  Report Type: 
  Country: None (occurrence: None)
  Receive Date: 20120405
  Receipt Date: 20120327
  Transmission Date: 20120825
  Serious: Yes (Other)
  Sender: FDA-Public Use
  Company Number: ES-SANOFI-AVENTIS-2012SA021798

PATIENT
  Age: 73 Year
  Sex: Female

DRUGS (11)
  1. OMEPRAZOLE [Concomitant]
  2. OXYGEN [Concomitant]
  3. CARVEDILOL [Concomitant]
  4. DIOVAN [Concomitant]
  5. NOVOMIX [Concomitant]
     Dosage: DOSE:30 UNIT(S)
  6. DIGOXIN [Concomitant]
     Dosage: DOSE:0.25 UNIT(S)
  7. SINTROM [Concomitant]
     Dosage: DOSAGE: SINTROM 4 MG: ALTERNATING ? AND 1/2, ALWAYS 1/2 ON SUNDAYS
  8. INSULIN ZINC SUSPENSION (CRYSTALLINE) [Concomitant]
  9. ACETAMINOPHEN [Concomitant]
  10. ENOXAPARIN SODIUM [Suspect]
     Route: 058
  11. FUROSEMIDE [Concomitant]

REACTIONS (5)
  - ANAEMIA [None]
  - RENAL FAILURE ACUTE [None]
  - DRUG ADMINISTERED AT INAPPROPRIATE SITE [None]
  - ABDOMINAL WALL HAEMATOMA [None]
  - SHOCK HAEMORRHAGIC [None]
